FAERS Safety Report 5827420-2 (Version None)
Quarter: 2008Q3

REPORT INFORMATION
  Report Type: 
  Country: None (occurrence: None)
  Receive Date: 20080730
  Receipt Date: 20080723
  Transmission Date: 20090109
  Serious: Yes (Death)
  Sender: FDA-Public Use
  Company Number: GB-TEVA-174897ISR

PATIENT
  Age: 54 Year
  Sex: Male

DRUGS (2)
  1. VALPROIC ACID [Suspect]
     Route: 048
  2. CLOZAPINE [Suspect]
     Indication: SCHIZOPHRENIA
     Route: 048
     Dates: start: 20041115, end: 20061219

REACTIONS (2)
  - ARTERIOSCLEROSIS CORONARY ARTERY [None]
  - LEFT VENTRICULAR FAILURE [None]
